FAERS Safety Report 8967234 (Version 1)
Quarter: 2012Q4

REPORT INFORMATION
  Report Type: Report from Study
  Country: CA (occurrence: CA)
  Receive Date: 20121217
  Receipt Date: 20121217
  Transmission Date: 20130627
  Serious: Yes (Other)
  Sender: FDA-Public Use
  Company Number: CA-JNJFOC-20121203850

PATIENT
  Sex: Female
  Weight: 58.06 kg

DRUGS (4)
  1. REMICADE [Suspect]
     Indication: JUVENILE ARTHRITIS
     Dosage: dose : 4vials,
     Route: 042
  2. REMICADE [Suspect]
     Indication: JUVENILE ARTHRITIS
     Dosage: dose: 5 vials
     Route: 042
  3. REMICADE [Suspect]
     Indication: UVEITIS
     Dosage: dose : 4vials,
     Route: 042
  4. REMICADE [Suspect]
     Indication: UVEITIS
     Dosage: dose: 5 vials
     Route: 042

REACTIONS (2)
  - Glaucoma [Unknown]
  - Retinal vascular thrombosis [Unknown]
